FAERS Safety Report 22101139 (Version 1)
Quarter: 2023Q1

REPORT INFORMATION
  Report Type: Report from Study
  Country: ES (occurrence: ES)
  Receive Date: 20230316
  Receipt Date: 20230316
  Transmission Date: 20230418
  Serious: Yes (Hospitalization)
  Sender: FDA-Public Use
  Company Number: ES-ACTELION-A-CH2019-186017

PATIENT
  Age: 25 Year
  Sex: Female
  Weight: 77 kg

DRUGS (25)
  1. OPSUMIT [Suspect]
     Active Substance: MACITENTAN
     Indication: Pulmonary arterial hypertension
     Dosage: 10 MG, QD
     Route: 048
     Dates: start: 20190117, end: 20190716
  2. SILDENAFIL [Suspect]
     Active Substance: SILDENAFIL
     Indication: Pulmonary arterial hypertension
     Dosage: 60 MG, QD
     Route: 065
     Dates: start: 20190117, end: 20190125
  3. VENTAVIS [Concomitant]
     Active Substance: ILOPROST
     Indication: Pulmonary arterial hypertension
     Dosage: UNK
     Route: 055
     Dates: start: 20190117, end: 20190121
  4. FAMCICLOVIR [Concomitant]
     Active Substance: FAMCICLOVIR
     Indication: Herpes virus infection
     Dosage: UNK
     Route: 048
     Dates: start: 20190124, end: 20190130
  5. LINEZOLID [Concomitant]
     Active Substance: LINEZOLID
     Indication: Infection
     Dosage: UNK
     Route: 042
     Dates: start: 20190117, end: 20190121
  6. MEROPENEM [Concomitant]
     Active Substance: MEROPENEM
     Indication: Infection
     Dosage: UNK
     Route: 042
     Dates: start: 20190117, end: 20190121
  7. LEVOSIMENDAN [Concomitant]
     Active Substance: LEVOSIMENDAN
     Indication: Cardiac failure
     Dosage: UNK
     Route: 042
     Dates: start: 20190117, end: 20190118
  8. DOBUTAMINE [Concomitant]
     Active Substance: DOBUTAMINE HYDROCHLORIDE
     Indication: Hypotension
     Dosage: UNK
     Route: 042
     Dates: start: 20190117, end: 20190118
  9. DIAZEPAM [Concomitant]
     Active Substance: DIAZEPAM
     Indication: Anxiety
     Dosage: UNK
     Route: 048
     Dates: start: 20190122
  10. BEMIPARIN [Concomitant]
     Active Substance: BEMIPARIN
     Indication: Thrombosis prophylaxis
     Dosage: UNK
     Route: 058
     Dates: start: 20190117
  11. CHOLECALCIFEROL [Concomitant]
     Active Substance: CHOLECALCIFEROL
     Indication: Osteoporosis prophylaxis
     Dosage: UNK
     Route: 048
     Dates: start: 20181121
  12. CALCIUM [Concomitant]
     Active Substance: CALCIUM
     Indication: Osteoporosis prophylaxis
     Dosage: UNK
     Route: 048
     Dates: start: 20181121
  13. ANAKINRA [Concomitant]
     Active Substance: ANAKINRA
     Indication: Still^s disease
     Dosage: UNK
     Route: 058
     Dates: start: 20181017
  14. METAMIZOLE [Concomitant]
     Active Substance: METAMIZOLE
     Indication: Still^s disease
     Dosage: UNK, PRN
     Route: 048
     Dates: start: 20180605, end: 20180620
  15. COLCHICINE [Concomitant]
     Active Substance: COLCHICINE
     Indication: Still^s disease
     Dosage: UNK
     Route: 048
     Dates: start: 20180725, end: 20180919
  16. METOCLOPRAMIDE [Concomitant]
     Active Substance: METOCLOPRAMIDE
     Indication: Nausea
     Dosage: UNK
     Route: 048
     Dates: start: 20180605, end: 20180620
  17. ACETAMINOPHEN [Concomitant]
     Active Substance: ACETAMINOPHEN
     Indication: Still^s disease
     Dosage: UNK
     Route: 048
     Dates: start: 20180605
  18. HYDROXYCHLOROQUINE [Concomitant]
     Active Substance: HYDROXYCHLOROQUINE
     Indication: Still^s disease
     Dosage: UNK
     Route: 048
     Dates: start: 20180605, end: 20180620
  19. OMEPRAZOLE [Concomitant]
     Active Substance: OMEPRAZOLE
     Indication: Prophylaxis
     Dosage: UNK
     Route: 048
     Dates: start: 20180605
  20. PREDNISONE [Concomitant]
     Active Substance: PREDNISONE
     Indication: Still^s disease
     Dosage: UNK
     Route: 048
     Dates: start: 20180605
  21. TACROLIMUS [Concomitant]
     Active Substance: TACROLIMUS
     Indication: Still^s disease
     Dosage: UNK
     Route: 048
     Dates: start: 20190201, end: 20190919
  22. TACROLIMUS [Concomitant]
     Active Substance: TACROLIMUS
     Dosage: UNK
     Route: 048
     Dates: start: 20210627
  23. ADCIRCA [Concomitant]
     Active Substance: TADALAFIL
     Indication: Pulmonary arterial hypertension
     Dosage: 40 MG, QD
     Dates: start: 20190719
  24. METHOTREXATE [Concomitant]
     Active Substance: METHOTREXATE
     Indication: Still^s disease
     Dates: start: 20190920
  25. LEVOFLOXACIN [Concomitant]
     Active Substance: LEVOFLOXACIN
     Indication: Staphylococcal bacteraemia
     Route: 048
     Dates: start: 20211222, end: 20220103

REACTIONS (8)
  - Pericardial effusion [Recovered/Resolved]
  - Concomitant disease aggravated [Recovering/Resolving]
  - Cardiac tamponade [Recovered/Resolved]
  - Pericardial drainage [Recovered/Resolved]
  - Still^s disease [Recovered/Resolved]
  - Hypotension [Recovering/Resolving]
  - Pyrexia [Recovering/Resolving]
  - Right ventricular dilatation [Recovering/Resolving]

NARRATIVE: CASE EVENT DATE: 20190125
